FAERS Safety Report 7777246-8 (Version None)
Quarter: 2011Q3

REPORT INFORMATION
  Report Type: 
  Country: None (occurrence: None)
  Receive Date: 20110926
  Receipt Date: 20110916
  Transmission Date: 20111222
  Serious: Yes (Other)
  Sender: FDA-Public Use
  Company Number: PHEH2006US00794

PATIENT
  Sex: Male

DRUGS (2)
  1. ZOMETA [Suspect]
  2. AREDIA [Suspect]

REACTIONS (13)
  - OSTEONECROSIS OF JAW [None]
  - EATING DISORDER [None]
  - OSTEOPENIA [None]
  - INTERMITTENT CLAUDICATION [None]
  - HYPERTENSION [None]
  - CEREBRAL ATROPHY [None]
  - BONE LESION [None]
  - EMOTIONAL DISTRESS [None]
  - SPINAL COMPRESSION FRACTURE [None]
  - DYSPNOEA [None]
  - PAIN [None]
  - LIFE EXPECTANCY SHORTENED [None]
  - POLYP [None]
